FAERS Safety Report 20217175 (Version 1)
Quarter: 2021Q4

REPORT INFORMATION
  Report Type: Other
  Country: US (occurrence: None)
  Receive Date: 20211222
  Receipt Date: 20211222
  Transmission Date: 20220303
  Serious: Yes (Other)
  Sender: FDA-Public Use
  Company Number: US-ROCHE-2980377

PATIENT
  Sex: Female

DRUGS (2)
  1. XELODA [Suspect]
     Active Substance: CAPECITABINE
     Indication: Breast cancer female
     Dosage: TAKE 3 TABLET(S) BY MOUTH TWICE A DAY FOR 1 WEEK(S) ON, THEN 1 WEEK(S) OFF, THEN REPEAT
     Route: 048
  2. XELODA [Suspect]
     Active Substance: CAPECITABINE
     Indication: Oestrogen receptor assay positive

REACTIONS (1)
  - Lung neoplasm malignant [Unknown]
